FAERS Safety Report 4278896-6 (Version None)
Quarter: 2004Q1

REPORT INFORMATION
  Report Type: 
  Country: None (occurrence: None)
  Receive Date: 20040122
  Receipt Date: 20040113
  Transmission Date: 20041129
  Serious: Yes (Other)
  Sender: FDA-Public Use
  Company Number: NSADSS2002044960

PATIENT
  Age: 39 Year
  Sex: Female
  Weight: 185.5212 kg

DRUGS (16)
  1. REMICADE [Suspect]
     Indication: RHEUMATOID ARTHRITIS
     Dosage: SEE IMAGE
     Route: 041
     Dates: start: 20020301, end: 20020101
  2. REMICADE [Suspect]
     Indication: RHEUMATOID ARTHRITIS
     Dosage: SEE IMAGE
     Route: 041
     Dates: start: 20030530
  3. REMICADE [Suspect]
     Indication: RHEUMATOID ARTHRITIS
     Dosage: SEE IMAGE
     Route: 041
     Dates: start: 20030613
  4. REMICADE [Suspect]
     Indication: RHEUMATOID ARTHRITIS
     Dosage: SEE IMAGE
     Route: 041
     Dates: start: 20030711
  5. METHOTREXATE SODIUM [Concomitant]
  6. FOLIC ACID [Concomitant]
  7. PROZAC [Concomitant]
  8. FOSAMAX [Concomitant]
  9. ELAVIL [Concomitant]
  10. PARADEINE (MEDOCODENE) [Concomitant]
  11. LOPRESSOR [Concomitant]
  12. KLONOPIN [Concomitant]
  13. VICODIN [Concomitant]
  14. PLAQUENIL [Concomitant]
  15. BENADRYL [Concomitant]
  16. TYLENOL [Concomitant]

REACTIONS (4)
  - DYSPNOEA [None]
  - OEDEMA PERIPHERAL [None]
  - PAIN [None]
  - WEIGHT INCREASED [None]
